FAERS Safety Report 8305384-X (Version None)
Quarter: 2012Q2

REPORT INFORMATION
  Report Type: 
  Country: None (occurrence: None)
  Receive Date: 20120423
  Receipt Date: 20120416
  Transmission Date: 20120825
  Serious: Yes (Hospitalization)
  Sender: FDA-Public Use
  Company Number: US-ASTRAZENECA-2012SE20429

PATIENT
  Age: 62 Year
  Sex: Female

DRUGS (3)
  1. FASLODEX [Suspect]
     Indication: NEOPLASM PROPHYLAXIS
     Route: 030
  2. TAMOXIFEN CITRATE [Concomitant]
  3. ARIMIDEX [Concomitant]

REACTIONS (1)
  - BONE NEOPLASM MALIGNANT [None]
